FAERS Safety Report 12475027 (Version 1)
Quarter: 2016Q2

REPORT INFORMATION
  Report Type: Spontaneous
  Country: US (occurrence: US)
  Receive Date: 20160617
  Receipt Date: 20160617
  Transmission Date: 20160815
  Serious: No
  Sender: FDA-Public Use
  Company Number: US-TEVA-667221ACC

PATIENT
  Sex: Female
  Weight: 63.56 kg

DRUGS (1)
  1. PARAGARD T 380A [Suspect]
     Active Substance: COPPER
     Indication: CONTRACEPTION
     Dates: start: 20160331, end: 20160401

REACTIONS (3)
  - Vaginal haemorrhage [Recovered/Resolved]
  - Dyspareunia [Recovered/Resolved]
  - Muscle spasms [Recovered/Resolved]
